FAERS Safety Report 6690362-7 (Version None)
Quarter: 2010Q2

REPORT INFORMATION
  Report Type: 
  Country: None (occurrence: None)
  Receive Date: 20100414
  Receipt Date: 20090217
  Transmission Date: 20101027
  Serious: Yes (Other)
  Sender: FDA-Public Use
  Company Number: 09-082

PATIENT
  Age: 46 Year
  Sex: Female

DRUGS (3)
  1. ALEVE [Suspect]
     Indication: FOOT FRACTURE
     Dosage: 220 MG, ONCE, ORAL
     Route: 048
     Dates: start: 20090209
  2. ALEVE [Suspect]
     Indication: OEDEMA PERIPHERAL
     Dosage: 220 MG, ONCE, ORAL
     Route: 048
     Dates: start: 20090209
  3. ALEVE [Suspect]
     Indication: PAIN IN EXTREMITY
     Dosage: 220 MG, ONCE, ORAL
     Route: 048
     Dates: start: 20090209

REACTIONS (1)
  - HYPERSENSITIVITY [None]
